FAERS Safety Report 17762258 (Version 1)
Quarter: 2020Q2

REPORT INFORMATION
  Report Type: Spontaneous
  Country: CA (occurrence: CA)
  Receive Date: 20200508
  Receipt Date: 20200508
  Transmission Date: 20200714
  Serious: Yes (Hospitalization, Other)
  Sender: FDA-Public Use
  Company Number: CA-BAYER-2020-072558

PATIENT
  Age: 12 Year
  Sex: Female

DRUGS (8)
  1. TOPIRAMATE. [Suspect]
     Active Substance: TOPIRAMATE
  2. NAPROXEN SODIUM ({= 220 MG) [Suspect]
     Active Substance: NAPROXEN SODIUM
     Indication: PAIN
     Dosage: 2 DF, QD
     Route: 048
  3. VITAMIN D [VITAMIN D NOS] [Suspect]
     Active Substance: VITAMIN D NOS
  4. BACLOFEN. [Suspect]
     Active Substance: BACLOFEN
  5. CLOBAZAM. [Suspect]
     Active Substance: CLOBAZAM
  6. CALCIUM [Suspect]
     Active Substance: CALCIUM
  7. LANSOPRAZOLE. [Suspect]
     Active Substance: LANSOPRAZOLE
  8. PHENOBARBITAL. [Suspect]
     Active Substance: PHENOBARBITAL

REACTIONS (1)
  - Haematemesis [None]
